FAERS Safety Report 8389884-2 (Version None)
Quarter: 2012Q2

REPORT INFORMATION
  Report Type: 
  Country: None (occurrence: None)
  Receive Date: 20120529
  Receipt Date: 20120514
  Transmission Date: 20120825
  Serious: Yes (Hospitalization, Other)
  Sender: FDA-Public Use
  Company Number: GB-JNJFOC-20120306195

PATIENT
  Sex: Male

DRUGS (3)
  1. PALIPERIDONE [Suspect]
     Indication: SCHIZOPHRENIA
     Route: 030
  2. PALIPERIDONE [Suspect]
     Route: 030
  3. ABILIFY [Concomitant]
     Indication: PRODUCT USED FOR UNKNOWN INDICATION
     Dosage: SINCE 6 MONTHS
     Route: 065

REACTIONS (2)
  - CONDITION AGGRAVATED [None]
  - ROAD TRAFFIC ACCIDENT [None]
